FAERS Safety Report 24747728 (Version 2)
Quarter: 2024Q4

REPORT INFORMATION
  Report Type: Spontaneous
  Country: GB (occurrence: GB)
  Receive Date: 20241218
  Receipt Date: 20241227
  Transmission Date: 20250115
  Serious: Yes (Hospitalization, Other)
  Sender: MYLAN
  Company Number: GB-MYLANLABS-2024M1104695

PATIENT
  Age: 27 Year
  Sex: Male

DRUGS (2)
  1. CLOZARIL [Suspect]
     Active Substance: CLOZAPINE
     Indication: Psychotic disorder
     Dosage: UNK (PROPOSED COMMENCEMENT DATE 20-NOV-2024)
     Route: 065
  2. CLOZARIL [Suspect]
     Active Substance: CLOZAPINE
     Indication: Schizophrenia
     Dosage: UNK, BID (TITRATION)
     Route: 048
     Dates: start: 20241120, end: 20241213

REACTIONS (4)
  - Eosinophilia [Recovering/Resolving]
  - Leukocytosis [Recovering/Resolving]
  - Neutrophilia [Unknown]
  - Off label use [Unknown]

NARRATIVE: CASE EVENT DATE: 20241212
